FAERS Safety Report 23914240 (Version 1)
Quarter: 2024Q2

REPORT INFORMATION
  Report Type: Spontaneous
  Country: US (occurrence: None)
  Receive Date: 20240528
  Receipt Date: 20240528
  Transmission Date: 20240716
  Serious: Yes (Other)
  Sender: FDA-Public Use
  Company Number: None

PATIENT
  Sex: Female

DRUGS (9)
  1. FABRAZYME [Suspect]
     Active Substance: AGALSIDASE BETA
     Indication: Fabry^s disease
     Dosage: FREQ: RECONSTITUTE EACH 5 MG VIAL WITH 1.1 ML SWFI; FOUR VIALS NEEDED PER DOSE. WITHDRAW 55 MG (11 ?
     Route: 042
     Dates: start: 20240202
  2. ASPIRIN [Concomitant]
     Active Substance: ASPIRIN
  3. DIPHEN HYDRAMINE HCL [Concomitant]
  4. EPINEPHRINE [Concomitant]
     Active Substance: EPINEPHRINE
  5. MONOJECT PHARMA GRADE FLU [Concomitant]
  6. SODIUM CHLORIDE [Concomitant]
     Active Substance: SODIUM CHLORIDE
  7. PRENATAL VIT TAB MINERALS [Concomitant]
  8. SODIUM CHLORIDE [Concomitant]
     Active Substance: SODIUM CHLORIDE
  9. SODIUM CHLORIDE [Concomitant]
     Active Substance: SODIUM CHLORIDE

REACTIONS (1)
  - Hospitalisation [None]
